FAERS Safety Report 5565153-0 (Version None)
Quarter: 2007Q4

REPORT INFORMATION
  Report Type: 
  Country: None (occurrence: None)
  Receive Date: 20071213
  Receipt Date: 20071213
  Transmission Date: 20080405
  Serious: Yes (Other)
  Sender: FDA-Public Use
  Company Number: None

PATIENT
  Age: 24 Year
  Sex: Female
  Weight: 84.8226 kg

DRUGS (3)
  1. SERTRALINE [Suspect]
     Indication: ANXIETY
     Dosage: 100MG  QD  PO
     Route: 048
     Dates: start: 20061101, end: 20071112
  2. SERTRALINE [Suspect]
     Indication: DEPRESSION
     Dosage: 100MG  QD  PO
     Route: 048
     Dates: start: 20061101, end: 20071112
  3. SERTRALINE [Suspect]
     Indication: FATIGUE
     Dosage: 100MG  QD  PO
     Route: 048
     Dates: start: 20061101, end: 20071112

REACTIONS (3)
  - ANXIETY [None]
  - NERVOUSNESS [None]
  - SUICIDAL IDEATION [None]
